FAERS Safety Report 7481976-5 (Version None)
Quarter: 2011Q2

REPORT INFORMATION
  Report Type: 
  Country: None (occurrence: None)
  Receive Date: 20110516
  Receipt Date: 20110510
  Transmission Date: 20111010
  Serious: Yes (Death, Other)
  Sender: FDA-Public Use
  Company Number: JP-ASTRAZENECA-2011SE27972

PATIENT
  Age: 70 Year
  Sex: Male

DRUGS (6)
  1. SEROQUEL [Suspect]
     Route: 048
     Dates: start: 20110210, end: 20110309
  2. SEROQUEL [Suspect]
     Route: 048
     Dates: start: 20110310
  3. MAGMITT [Concomitant]
  4. GRAMALIL [Concomitant]
     Dates: start: 20110210, end: 20110310
  5. URIEF [Concomitant]
  6. LUVOX [Concomitant]
     Dates: start: 20110210, end: 20110310

REACTIONS (3)
  - CARDIAC FAILURE [None]
  - ABASIA [None]
  - DYSSTASIA [None]
